FAERS Safety Report 10384192 (Version 1)
Quarter: 2014Q1

REPORT INFORMATION
  Report Type: Spontaneous
  Country: US (occurrence: None)
  Receive Date: 20140306
  Receipt Date: 20140306
  Transmission Date: 20141002
  Serious: Yes (Other)
  Sender: FDA-Public Use
  Company Number: 163-21880-13051241

PATIENT
  Age: 69 Year
  Sex: Female
  Weight: 74.39 kg

DRUGS (5)
  1. REVLIMID (LENALIDOMIDE) (5 MILLIGRAM, CAPSULES) [Suspect]
     Indication: PLASMA CELL MYELOMA
     Dates: start: 20130410
  2. ASA (ACETYLSALICYLIC ACID) [Concomitant]
  3. STATIN (UNSPECIFIED TRADITIONAL MEDICINE) [Concomitant]
  4. METOPROLOL (METOPROLOL) [Concomitant]
  5. THYROID (THYROID) [Concomitant]

REACTIONS (1)
  - Pancytopenia [None]
